FAERS Safety Report 5286118-2 (Version None)
Quarter: 2007Q1

REPORT INFORMATION
  Report Type: 
  Country: None (occurrence: None)
  Receive Date: 20070329
  Receipt Date: 20070319
  Transmission Date: 20070707
  Serious: Yes (Hospitalization)
  Sender: FDA-Public Use
  Company Number: 163-21880-07031136

PATIENT
  Age: 47 Year
  Sex: Male

DRUGS (12)
  1. REVLIMID [Suspect]
     Indication: MULTIPLE MYELOMA
     Dosage: 25 MG, DAILY X21 DAYS Q28D, ORAL
     Route: 048
     Dates: start: 20061001, end: 20070301
  2. REVLIMID [Suspect]
     Dosage: 25 MG, DAILY X21D, Q28D, ORAL
     Route: 048
     Dates: start: 20070312
  3. FUROSEMIDE [Concomitant]
  4. CHERATUSSIN AC (CHERATUSSIN AC) [Concomitant]
  5. CLONIDINE [Concomitant]
  6. DOXYCYCLINE [Concomitant]
  7. GABAPENTIN [Concomitant]
  8. WARFARIN SODIUM [Concomitant]
  9. ATENOLOL [Concomitant]
  10. DEXAMETHASONE TAB [Concomitant]
  11. METHADONE HCL [Concomitant]
  12. NIFEDICAL XL (NIFEDIPINE) [Concomitant]

REACTIONS (3)
  - ASTHMA [None]
  - CONDITION AGGRAVATED [None]
  - RESPIRATORY FAILURE [None]
